FAERS Safety Report 19326900 (Version 1)
Quarter: 2021Q2

REPORT INFORMATION
  Report Type: Spontaneous
  Country: US (occurrence: US)
  Receive Date: 20210528
  Receipt Date: 20210528
  Transmission Date: 20210717
  Serious: Yes (Other)
  Sender: FDA-Public Use
  Company Number: US-PURDUE-USA-2020-0233712

PATIENT

DRUGS (4)
  1. TRAMADOL CR TABLETS (RHODES 21?745) [Suspect]
     Active Substance: TRAMADOL
     Indication: ROTATOR CUFF REPAIR
     Dosage: UNK
     Route: 048
     Dates: start: 2003, end: 202002
  2. HYDROCODONE BITARTRATE AND ACETAMINOPHEN [Suspect]
     Active Substance: ACETAMINOPHEN\HYDROCODONE BITARTRATE
     Indication: ROTATOR CUFF REPAIR
     Dosage: UNK
     Route: 048
     Dates: start: 2003, end: 202002
  3. OXYCODONE AND ACETAMINOPHEN [Suspect]
     Active Substance: ACETAMINOPHEN\OXYCODONE HYDROCHLORIDE
     Indication: ROTATOR CUFF REPAIR
     Dosage: UNK
     Route: 048
     Dates: start: 2003, end: 202002
  4. OXYCONTIN [Suspect]
     Active Substance: OXYCODONE HYDROCHLORIDE
     Indication: ROTATOR CUFF REPAIR
     Dosage: UNK
     Route: 048
     Dates: start: 2003, end: 202002

REACTIONS (8)
  - Herpes zoster [Unknown]
  - Spinal stenosis [Unknown]
  - Sciatica [Unknown]
  - Trigeminal nerve disorder [Unknown]
  - Neck pain [Unknown]
  - Back pain [Unknown]
  - Drug dependence [Unknown]
  - Migraine [Unknown]

NARRATIVE: CASE EVENT DATE: 2008
